FAERS Safety Report 9579024 (Version 1)
Quarter: 2013Q4

REPORT INFORMATION
  Report Type: Spontaneous
  Country: US (occurrence: US)
  Receive Date: 20131001
  Receipt Date: 20131001
  Transmission Date: 20140711
  Serious: No
  Sender: FDA-Public Use
  Company Number: US-AMGEN-USASP2013016511

PATIENT
  Age: 45 Year
  Sex: Female
  Weight: 113.38 kg

DRUGS (8)
  1. ENBREL [Suspect]
     Indication: PSORIATIC ARTHROPATHY
     Dosage: 50 MG/ML, QWK
  2. XENAZINE [Concomitant]
     Dosage: 12.5 MG, UNK
  3. ZIAC [Concomitant]
     Dosage: 5-6.25 MG
  4. FOLIC ACID [Concomitant]
     Dosage: UNK
  5. ESTRADIOL [Concomitant]
     Dosage: 2 MG, UNK
  6. MELOXICAM [Concomitant]
     Dosage: 7.5 MG, UNK
  7. OMEPRAZOLE [Concomitant]
     Dosage: 20 MG, UNK
  8. METHOTREXATE [Concomitant]
     Dosage: 2.5 MG, UNK

REACTIONS (1)
  - Drug ineffective [Unknown]
